FAERS Safety Report 6971149-4 (Version None)
Quarter: 2010Q3

REPORT INFORMATION
  Report Type: 
  Country: None (occurrence: None)
  Receive Date: 20100908
  Receipt Date: 20100831
  Transmission Date: 20110219
  Serious: Yes (Hospitalization)
  Sender: FDA-Public Use
  Company Number: NO-MERCK-1009NOR00001

PATIENT
  Age: 51 Year
  Sex: Female

DRUGS (4)
  1. ZOCOR [Suspect]
     Indication: ANGIOPATHY
     Route: 048
  2. LORATADINE [Concomitant]
     Route: 048
  3. ASPIRIN AND DIPYRIDAMOLE [Concomitant]
     Route: 048
  4. EPROSARTAN MESYLATE AND HYDROCHLOROTHIAZIDE [Concomitant]
     Route: 048

REACTIONS (3)
  - ABDOMINAL PAIN UPPER [None]
  - BREAST PAIN [None]
  - LIVER FUNCTION TEST ABNORMAL [None]
